FAERS Safety Report 21926716 (Version 1)
Quarter: 2023Q1

REPORT INFORMATION
  Report Type: Spontaneous
  Country: US (occurrence: US)
  Receive Date: 20230130
  Receipt Date: 20230130
  Transmission Date: 20230417
  Serious: Yes (Other)
  Sender: FDA-Public Use
  Company Number: US-TEVA-2023-US-2849241

PATIENT
  Age: 37 Year
  Sex: Male

DRUGS (1)
  1. WARFARIN SODIUM [Suspect]
     Active Substance: WARFARIN SODIUM
     Indication: Product used for unknown indication
     Dosage: 5 MG FIVE DAYS A WEEK, 2.5 MG TWO DAYS A WEEK
     Route: 065
     Dates: start: 202207

REACTIONS (2)
  - Coeliac disease [Unknown]
  - Wrong technique in product usage process [Unknown]
